FAERS Safety Report 4601049-6 (Version None)
Quarter: 2005Q1

REPORT INFORMATION
  Report Type: 
  Country: None (occurrence: None)
  Receive Date: 20050127
  Receipt Date: 20041111
  Transmission Date: 20050727
  Serious: No
  Sender: FDA-Public Use
  Company Number: USA041183872

PATIENT
  Age: 10 Year
  Sex: Male
  Weight: 32 kg

DRUGS (3)
  1. STRATTERA [Suspect]
     Indication: ATTENTION DEFICIT/HYPERACTIVITY DISORDER
     Dosage: 60 MG DAY
     Dates: start: 20040901
  2. DEPAKOTE [Concomitant]
  3. VISTARIL [Concomitant]

REACTIONS (2)
  - PRESCRIBED OVERDOSE [None]
  - SOMNOLENCE [None]
